FAERS Safety Report 7889050-0 (Version None)
Quarter: 2011Q4

REPORT INFORMATION
  Report Type: 
  Country: None (occurrence: None)
  Receive Date: 20111103
  Receipt Date: 20111027
  Transmission Date: 20120403
  Serious: Yes (Hospitalization)
  Sender: FDA-Public Use
  Company Number: US-B.I. PHARMACEUTICALS,INC./RIDGEFIELD-2011-BP-02914BP

PATIENT
  Sex: Female
  Weight: 67.3 kg

DRUGS (8)
  1. PRADAXA [Suspect]
     Indication: CARDIAC PACEMAKER INSERTION
  2. FOLIC ACID [Concomitant]
  3. DIURETICS [Concomitant]
     Indication: SWELLING
  4. DIURETICS [Concomitant]
     Indication: ARTHRITIS
  5. PRADAXA [Suspect]
     Indication: ATRIAL FIBRILLATION
  6. METHOTREXATE [Concomitant]
  7. BONIVA [Concomitant]
  8. METOPROLOL TARTRATE [Concomitant]

REACTIONS (7)
  - VOMITING [None]
  - GASTROINTESTINAL TRACT IRRITATION [None]
  - ABDOMINAL PAIN UPPER [None]
  - PYREXIA [None]
  - MALAISE [None]
  - NAUSEA [None]
  - PANCREATITIS [None]
